FAERS Safety Report 21167775 (Version 1)
Quarter: 2022Q3

REPORT INFORMATION
  Report Type: Spontaneous
  Country: US (occurrence: US)
  Receive Date: 20220803
  Receipt Date: 20220803
  Transmission Date: 20221027
  Serious: No
  Sender: FDA-Public Use
  Company Number: US-PFIZER INC-202201028501

PATIENT
  Age: 29 Year
  Sex: Female

DRUGS (1)
  1. DEPO-ESTRADIOL [Suspect]
     Active Substance: ESTRADIOL CYPIONATE
     Indication: Hormone therapy
     Dosage: UNK

REACTIONS (3)
  - Anxiety [Unknown]
  - Product supply issue [Unknown]
  - Product dose omission issue [Unknown]
